FAERS Safety Report 6822900-5 (Version None)
Quarter: 2010Q3

REPORT INFORMATION
  Report Type: 
  Country: None (occurrence: None)
  Receive Date: 20100702
  Receipt Date: 20100625
  Transmission Date: 20110219
  Serious: Yes (Other)
  Sender: FDA-Public Use
  Company Number: DSA_43377_2010

PATIENT
  Sex: Female

DRUGS (8)
  1. XENAZINE [Suspect]
     Indication: TARDIVE DYSKINESIA
     Dosage: (37.5 MG BID ORAL)
     Route: 048
     Dates: start: 20090427
  2. LYRICA [Concomitant]
  3. CYMBALTA [Concomitant]
  4. FLEXERIL [Concomitant]
  5. PRILOSEC /00661201/ [Concomitant]
  6. DYAZIDE [Concomitant]
  7. ASPIRIN [Concomitant]
  8. MULTI-VITAMINS [Concomitant]

REACTIONS (2)
  - DYSKINESIA [None]
  - MUSCLE TWITCHING [None]
